FAERS Safety Report 7300086-0 (Version None)
Quarter: 2011Q1

REPORT INFORMATION
  Report Type: 
  Country: None (occurrence: None)
  Receive Date: 20110217
  Receipt Date: 20110118
  Transmission Date: 20110831
  Serious: Yes (Hospitalization, Other)
  Sender: FDA-Public Use
  Company Number: DE-BAYER-201042320GPV

PATIENT
  Sex: Female
  Weight: 75 kg

DRUGS (6)
  1. XARELTO [Suspect]
     Indication: KNEE ARTHROPLASTY
     Dosage: 10 MG, UNK
     Dates: start: 20101009, end: 20101011
  2. ASPIRIN [Interacting]
     Indication: PRODUCT USED FOR UNKNOWN INDICATION
     Dosage: UNK
  3. CLOPIDOGREL [Interacting]
  4. L-DOPA [Concomitant]
  5. ISCOVER [Interacting]
     Indication: STENT PLACEMENT
     Dosage: 75 MG, UNK
     Dates: start: 20100628
  6. XARELTO [Suspect]
     Dosage: DAILY DOSE 10 MG
     Dates: start: 20100601

REACTIONS (3)
  - OEDEMA [None]
  - HAEMORRHAGE INTRACRANIAL [None]
  - NEOPLASM [None]
